FAERS Safety Report 6750516-8 (Version None)
Quarter: 2010Q2

REPORT INFORMATION
  Report Type: 
  Country: None (occurrence: None)
  Receive Date: 20100528
  Receipt Date: 20100528
  Transmission Date: 20101027
  Serious: Yes (Life-Threatening, Other)
  Sender: FDA-Public Use
  Company Number: None

PATIENT
  Age: 60 Year
  Sex: Female
  Weight: 90.7194 kg

DRUGS (2)
  1. ALEVE (CAPLET) [Suspect]
     Indication: BACK PAIN
     Dosage: 1-2 TABLETS 24 HOURS
     Dates: start: 20080601, end: 20080731
  2. ALEVE (CAPLET) [Suspect]
     Indication: MUSCULOSKELETAL PAIN
     Dosage: 1-2 TABLETS 24 HOURS
     Dates: start: 20080601, end: 20080731

REACTIONS (9)
  - ABDOMINAL DISCOMFORT [None]
  - ARTHROPOD BITE [None]
  - CHEST DISCOMFORT [None]
  - CHILLS [None]
  - COUGH [None]
  - DYSPNOEA [None]
  - MUSCULOSKELETAL PAIN [None]
  - POISONING [None]
  - URTICARIA [None]
